FAERS Safety Report 15938872 (Version 1)
Quarter: 2019Q1

REPORT INFORMATION
  Report Type: Spontaneous
  Country: US (occurrence: US)
  Receive Date: 20190208
  Receipt Date: 20190208
  Transmission Date: 20190417
  Serious: No
  Sender: FDA-Public Use
  Company Number: US-SA-2019SA037702

PATIENT

DRUGS (3)
  1. PLAQUENIL [Suspect]
     Active Substance: HYDROXYCHLOROQUINE SULFATE
  2. ATABRINE [Suspect]
     Active Substance: QUINACRINE
  3. RIFAMPICIN [Suspect]
     Active Substance: RIFAMPIN

REACTIONS (1)
  - Hypersensitivity [Unknown]
